FAERS Safety Report 8570942-4 (Version None)
Quarter: 2012Q3

REPORT INFORMATION
  Report Type: 
  Country: None (occurrence: None)
  Receive Date: 20120806
  Receipt Date: 20120730
  Transmission Date: 20120928
  Serious: No
  Sender: FDA-Public Use
  Company Number: US-BIOGENIDEC-2012BI028042

PATIENT
  Age: 53 Year
  Sex: Male

DRUGS (1)
  1. TYSABRI [Suspect]
     Indication: MULTIPLE SCLEROSIS
     Route: 042
     Dates: start: 20120627, end: 20120725

REACTIONS (6)
  - MUSCLE SPASTICITY [None]
  - FATIGUE [None]
  - MENTAL IMPAIRMENT [None]
  - PERONEAL NERVE PALSY [None]
  - DEPRESSION [None]
  - ARTHRALGIA [None]
